FAERS Safety Report 16073004 (Version 1)
Quarter: 2019Q1

REPORT INFORMATION
  Report Type: Spontaneous
  Country: US (occurrence: US)
  Receive Date: 20190314
  Receipt Date: 20190314
  Transmission Date: 20190418
  Serious: Yes (Life-Threatening, Hospitalization)
  Sender: FDA-Public Use
  Company Number: US-BRECKENRIDGE PHARMACEUTICAL, INC.-2063987

PATIENT
  Age: 71 Year
  Sex: Female
  Weight: 80.91 kg

DRUGS (3)
  1. DULOXETINE. [Suspect]
     Active Substance: DULOXETINE
     Route: 048
  2. NORCO [Concomitant]
     Active Substance: ACETAMINOPHEN\HYDROCODONE BITARTRATE
     Route: 048
  3. DILTIAZEM. [Concomitant]
     Active Substance: DILTIAZEM
     Route: 048

REACTIONS (13)
  - Insomnia [None]
  - Dizziness [None]
  - Headache [None]
  - Fatigue [None]
  - Constipation [None]
  - Panic attack [None]
  - Asthenia [None]
  - Eye swelling [None]
  - Pain in extremity [None]
  - Weight decreased [None]
  - Anxiety [None]
  - Decreased appetite [None]
  - Palpitations [None]
